FAERS Safety Report 9803091 (Version 1)
Quarter: 2014Q1

REPORT INFORMATION
  Report Type: Spontaneous
  Country: US (occurrence: None)
  Receive Date: 20140102
  Receipt Date: 20140102
  Transmission Date: 20141002
  Serious: Yes (Other)
  Sender: FDA-Public Use
  Company Number: SYM-2013-14314

PATIENT
  Age: 14 Year
  Sex: Male

DRUGS (1)
  1. SOLODYN [Suspect]
     Indication: ACNE
     Route: 048
     Dates: start: 20131204

REACTIONS (5)
  - Dizziness [None]
  - Depression [None]
  - Vision blurred [None]
  - Headache [None]
  - Nightmare [None]
